FAERS Safety Report 9571117 (Version 2)
Quarter: 2013Q4

REPORT INFORMATION
  Report Type: Spontaneous
  Country: CA (occurrence: CA)
  Receive Date: 20131001
  Receipt Date: 20131009
  Transmission Date: 20140711
  Serious: Yes (Death, Hospitalization, Other)
  Sender: FDA-Public Use
  Company Number: PHHY2013CA108592

PATIENT
  Age: 50 Year
  Sex: Female

DRUGS (5)
  1. AFINITOR [Suspect]
     Indication: BREAST CANCER METASTATIC
     Dosage: 10 MG, DAILY
     Route: 048
     Dates: start: 20121220, end: 20130910
  2. EXEMESTANE [Concomitant]
  3. DENOSUMAB [Concomitant]
     Dosage: 120 MG, QD
  4. DEXAMETHASONE [Concomitant]
     Dosage: 4 MG, QD
  5. GABAPENTIN [Concomitant]

REACTIONS (7)
  - Death [Fatal]
  - Thrombotic thrombocytopenic purpura [Not Recovered/Not Resolved]
  - Haematuria [Unknown]
  - Confusional state [Unknown]
  - Convulsion [Unknown]
  - Anaemia [Unknown]
  - Metastases to bone marrow [Unknown]
